FAERS Safety Report 18111680 (Version 4)
Quarter: 2020Q4

REPORT INFORMATION
  Report Type: Report from Study
  Country: None (occurrence: US)
  Receive Date: 20200804
  Receipt Date: 20201202
  Transmission Date: 20210113
  Serious: Yes (Hospitalization, Other)
  Sender: FDA-Public Use
  Company Number: US-ABBVIE-20K-163-3502601-00

PATIENT
  Sex: Female

DRUGS (3)
  1. HUMIRA [Suspect]
     Active Substance: ADALIMUMAB
     Route: 058
     Dates: start: 20200726, end: 2020
  2. HUMIRA [Suspect]
     Active Substance: ADALIMUMAB
     Route: 058
     Dates: start: 2020
  3. HUMIRA [Suspect]
     Active Substance: ADALIMUMAB
     Indication: PSORIASIS
     Route: 058
     Dates: end: 201909

REACTIONS (28)
  - Skin irritation [Not Recovered/Not Resolved]
  - Psoriasis [Not Recovered/Not Resolved]
  - Gastric bypass [Unknown]
  - Helplessness [Unknown]
  - Weight decreased [Unknown]
  - Mental disorder [Unknown]
  - Eye disorder [Unknown]
  - Arthritis [Unknown]
  - Nephrolithiasis [Unknown]
  - Ear discomfort [Unknown]
  - Head injury [Unknown]
  - Emotional distress [Unknown]
  - Anxiety disorder [Not Recovered/Not Resolved]
  - Headache [Unknown]
  - Back pain [Unknown]
  - Anaemia [Unknown]
  - Herpes zoster [Unknown]
  - Stress [Unknown]
  - Musculoskeletal discomfort [Unknown]
  - Self-consciousness [Recovering/Resolving]
  - Frustration tolerance decreased [Unknown]
  - Pain [Unknown]
  - Renal injury [Unknown]
  - Hypersensitivity [Unknown]
  - Injection site haemorrhage [Unknown]
  - Brain injury [Unknown]
  - Fibromyalgia [Unknown]
  - Abdominal pain upper [Recovering/Resolving]

NARRATIVE: CASE EVENT DATE: 2019
